FAERS Safety Report 5480119-7 (Version None)
Quarter: 2007Q4

REPORT INFORMATION
  Report Type: 
  Country: None (occurrence: None)
  Receive Date: 20071009
  Receipt Date: 20071004
  Transmission Date: 20080405
  Serious: Yes (Life-Threatening, Hospitalization)
  Sender: FDA-Public Use
  Company Number: PHEH2007US13195

PATIENT
  Sex: Male

DRUGS (2)
  1. NEORAL [Suspect]
     Route: 048
  2. SANDIMMUNE [Concomitant]

REACTIONS (2)
  - IMMUNOSUPPRESSANT DRUG LEVEL DECREASED [None]
  - MALAISE [None]
